FAERS Safety Report 19396000 (Version 3)
Quarter: 2022Q1

REPORT INFORMATION
  Report Type: Spontaneous
  Country: RU (occurrence: RU)
  Receive Date: 20210609
  Receipt Date: 20220103
  Transmission Date: 20220423
  Serious: Yes (Hospitalization, Other)
  Sender: FDA-Public Use
  Company Number: RU-TAKEDA-2021TUS036097

PATIENT
  Age: 14 Year
  Sex: Female
  Weight: 49 kg

DRUGS (3)
  1. TAKHZYRO [Suspect]
     Active Substance: LANADELUMAB-FLYO
     Indication: Hereditary angioedema with C1 esterase inhibitor deficiency
     Dosage: 300 MILLIGRAM, Q2WEEKS
     Route: 058
     Dates: start: 20210302
  2. TAKHZYRO [Suspect]
     Active Substance: LANADELUMAB-FLYO
     Dosage: 300 MILLIGRAM, Q3WEEKS
     Route: 058
     Dates: start: 20210302
  3. Sanxamik [Concomitant]
     Indication: Hereditary angioedema with C1 esterase inhibitor deficiency
     Dosage: 2 GRAM, QD
     Dates: start: 2020, end: 20210402

REACTIONS (6)
  - Genital haemorrhage [Recovered/Resolved]
  - Headache [Recovered/Resolved]
  - Visual impairment [Recovered/Resolved]
  - Hypoaesthesia [Recovered/Resolved]
  - Dizziness [Recovered/Resolved]
  - Hypoaesthesia oral [Recovered/Resolved]

NARRATIVE: CASE EVENT DATE: 20210502
